FAERS Safety Report 8990251 (Version 1)
Quarter: 2012Q4

REPORT INFORMATION
  Report Type: 
  Country: NO (occurrence: NO)
  Receive Date: 20121228
  Receipt Date: 20121228
  Transmission Date: 20130627
  Serious: Yes (Hospitalization, Disabling)
  Sender: FDA-Public Use
  Company Number: NO-ASTRAZENECA-2012SE94769

PATIENT
  Age: 21145 Day
  Sex: Male
  Weight: 82 kg

DRUGS (9)
  1. SELOZOK [Suspect]
     Indication: MYOCARDIAL ISCHAEMIA
     Route: 048
     Dates: start: 19931223
  2. NORVASC [Suspect]
     Indication: BLOOD CHOLESTEROL
     Dates: start: 19931223
  3. CARVEDILOL HEXAL [Concomitant]
     Dates: start: 20050420
  4. OMACOR [Concomitant]
     Dates: start: 19931222
  5. EZETROL [Concomitant]
     Dates: start: 20070617
  6. CRESTOR [Concomitant]
     Route: 048
  7. IMDUR [Concomitant]
     Route: 048
     Dates: start: 19931223
  8. TRAMAGETIC OD [Concomitant]
  9. ALBYL-E [Concomitant]
     Dates: start: 19931223

REACTIONS (3)
  - Chronic obstructive pulmonary disease [Not Recovered/Not Resolved]
  - Myalgia [Not Recovered/Not Resolved]
  - Arthralgia [Not Recovered/Not Resolved]
